FAERS Safety Report 9553021 (Version 1)
Quarter: 2013Q3

REPORT INFORMATION
  Report Type: Spontaneous
  Country: US (occurrence: US)
  Receive Date: 20130925
  Receipt Date: 20130925
  Transmission Date: 20140515
  Serious: No
  Sender: FDA-Public Use
  Company Number: US-009507513-1309USA011461

PATIENT
  Age: 37 Year
  Sex: Female

DRUGS (4)
  1. CLARITIN LIQUIGELS [Suspect]
     Indication: HYPERSENSITIVITY
     Dosage: UNK, UNKNOWN
     Route: 048
  2. CLARITIN LIQUIGELS [Suspect]
     Indication: SNEEZING
  3. CLARITIN LIQUIGELS [Suspect]
     Indication: THROAT IRRITATION
  4. CLARITIN LIQUIGELS [Suspect]
     Indication: EYE PRURITUS

REACTIONS (2)
  - Drug effect decreased [Unknown]
  - Product quality issue [Unknown]
